FAERS Safety Report 6342834-2 (Version None)
Quarter: 2009Q3

REPORT INFORMATION
  Report Type: 
  Country: None (occurrence: None)
  Receive Date: 20090903
  Receipt Date: 20090821
  Transmission Date: 20100115
  Serious: Yes (Other)
  Sender: FDA-Public Use
  Company Number: CIR-SI-183-09

PATIENT
  Age: 54 Year
  Sex: Female

DRUGS (2)
  1. CIRCADIN (MELATONIN) [Suspect]
     Indication: INSOMNIA
     Dosage: 2 MG (2 MG), ORAL
     Route: 048
     Dates: start: 20090205, end: 20090205
  2. CIRCADIN (MELATONIN) [Suspect]
     Indication: INSOMNIA
     Dosage: 2 MG (2 MG), ORAL
     Route: 048
     Dates: start: 20090413, end: 20090413

REACTIONS (5)
  - CHEST DISCOMFORT [None]
  - FEELING ABNORMAL [None]
  - SENSATION OF HEAVINESS [None]
  - TACHYCARDIA [None]
  - TREMOR [None]
